FAERS Safety Report 9183526 (Version 3)
Quarter: 2013Q3

REPORT INFORMATION
  Report Type: Report from Study
  Country: BR (occurrence: BR)
  Receive Date: 20130322
  Receipt Date: 20130819
  Transmission Date: 20140515
  Serious: Yes (Other)
  Sender: FDA-Public Use
  Company Number: PHHY2013BR028210

PATIENT
  Sex: Female
  Weight: 56 kg

DRUGS (6)
  1. DIOVAN [Suspect]
     Indication: HYPERTENSION
     Dosage: 0.5 DF, BID (HALF TABLET IN THE MORNING AND HALF TABLET AT NIGHT)
     Route: 048
  2. DIOVAN AMLO FIX [Suspect]
     Indication: HYPERTENSION
     Dosage: 1 DF (160 MG VALS/5 MG AMLO), A DAY
     Route: 048
  3. LUFTAL [Concomitant]
     Dosage: 40 DRP, UNK
     Route: 048
  4. PLASIL [Concomitant]
     Indication: CONSTIPATION
     Dosage: 35 DRP, Q8H
  5. DIPIRONA [Concomitant]
     Indication: PAIN
     Dosage: UNK UKN, UNK
  6. FLORATIL [Concomitant]
     Indication: CONSTIPATION
     Dosage: 1 DF (100MG), BID (ONE IN THE MORNING AND ONE AT NIGHT)
     Route: 048

REACTIONS (13)
  - Glaucoma [Recovered/Resolved]
  - Cataract [Recovered/Resolved]
  - Gastrointestinal infection [Unknown]
  - Lung disorder [Recovered/Resolved]
  - Swelling [Recovered/Resolved]
  - Vomiting [Unknown]
  - Weight decreased [Recovered/Resolved]
  - Influenza [Recovered/Resolved]
  - Diarrhoea [Unknown]
  - Viral infection [Unknown]
  - Hypotension [Unknown]
  - Blood pressure fluctuation [Recovering/Resolving]
  - Blood pressure increased [Recovering/Resolving]
